FAERS Safety Report 10182505 (Version 1)
Quarter: 2014Q2

REPORT INFORMATION
  Report Type: Spontaneous
  Country: US (occurrence: None)
  Receive Date: 20140519
  Receipt Date: 20140519
  Transmission Date: 20141212
  Serious: Yes (Life-Threatening)
  Sender: FDA-Public Use
  Company Number: None

PATIENT
  Age: 64 Year
  Sex: Male
  Weight: 83.6 kg

DRUGS (1)
  1. XARELTO [Suspect]
     Dosage: 1 TABLET, BID, ORAL
     Route: 048

REACTIONS (1)
  - Haemorrhage [None]
